FAERS Safety Report 20180176 (Version 1)
Quarter: 2021Q4

REPORT INFORMATION
  Report Type: Spontaneous
  Country: NO (occurrence: NO)
  Receive Date: 20211214
  Receipt Date: 20211214
  Transmission Date: 20220303
  Serious: Yes (Life-Threatening, Hospitalization)
  Sender: FDA-Public Use
  Company Number: None

PATIENT
  Age: 74 Year
  Sex: Female

DRUGS (12)
  1. CISPLATIN [Suspect]
     Active Substance: CISPLATIN
     Indication: Thymoma
     Route: 042
     Dates: start: 20210907, end: 20210910
  2. DOXORUBICIN [Suspect]
     Active Substance: DOXORUBICIN
     Indication: Thymoma
     Route: 042
     Dates: start: 20210907, end: 20210910
  3. ETOPOSIDE [Suspect]
     Active Substance: ETOPOSIDE
     Indication: Thymoma
     Route: 042
     Dates: start: 20210907, end: 20210910
  4. ALBUTEROL [Concomitant]
     Active Substance: ALBUTEROL
     Dosage: STRENGTH: 0.1 MG
  5. PANTOPRAZOLE SODIUM [Concomitant]
     Active Substance: PANTOPRAZOLE SODIUM
     Indication: Prophylaxis of nausea and vomiting
     Dosage: STRENGTH: 40 MG
     Dates: start: 20210907, end: 20210910
  6. Netupitant , Palonosetron [Concomitant]
     Indication: Prophylaxis of nausea and vomiting
     Dosage: STRENGTH: 300/0.5 MG
     Dates: start: 20210907, end: 20210910
  7. DEXAMETHASONE [Concomitant]
     Active Substance: DEXAMETHASONE
     Indication: Prophylaxis of nausea and vomiting
     Dates: start: 20210907, end: 20210910
  8. XARELTO [Concomitant]
     Active Substance: RIVAROXABAN
     Dosage: 20 MG MILLIGRAM(S)
  9. ESTRADIOL\NORETHINDRONE ACETATE [Concomitant]
     Active Substance: ESTRADIOL\NORETHINDRONE ACETATE
     Dosage: STRENGTH: 0.5/0.1 MG
  10. ELOCON [Concomitant]
     Active Substance: MOMETASONE FUROATE
     Dosage: STRENGTH: 0.1 % PERCENT
  11. Paralgin Forte [Concomitant]
     Dosage: STRENGTH: 30/400 MG
  12. METOPROLOL TARTRATE [Concomitant]
     Active Substance: METOPROLOL TARTRATE
     Dosage: STRENGTH: 25 MG

REACTIONS (2)
  - Mesenteric haemorrhage [Recovering/Resolving]
  - Off label use [Unknown]

NARRATIVE: CASE EVENT DATE: 20210910
